FAERS Safety Report 6929274-X (Version None)
Quarter: 2010Q3

REPORT INFORMATION
  Report Type: 
  Country: None (occurrence: None)
  Receive Date: 20100811
  Receipt Date: 20100727
  Transmission Date: 20110219
  Serious: Yes (Other)
  Sender: FDA-Public Use
  Company Number: AUR-APL-2010-01956

PATIENT

DRUGS (2)
  1. SIMVASTATIN [Suspect]
     Dosage: 40MG
  2. LIPITOR [Suspect]
     Dosage: 10MG

REACTIONS (1)
  - INTERSTITIAL LUNG DISEASE [None]
